FAERS Safety Report 12580128 (Version 1)
Quarter: 2016Q3

REPORT INFORMATION
  Report Type: Spontaneous
  Country: SE (occurrence: SE)
  Receive Date: 20160721
  Receipt Date: 20160721
  Transmission Date: 20161109
  Serious: Yes (Other)
  Sender: FDA-Public Use
  Company Number: SE-BAYER-2016-141755

PATIENT
  Age: 50 Year
  Sex: Female

DRUGS (2)
  1. MIRENA [Suspect]
     Active Substance: LEVONORGESTREL
     Indication: MENORRHAGIA
     Dosage: 20 MCG/24HR, CONT
     Route: 015
     Dates: start: 201602, end: 20160717
  2. MIRENA [Suspect]
     Active Substance: LEVONORGESTREL
     Indication: UTERINE LEIOMYOMA

REACTIONS (2)
  - Alopecia [Not Recovered/Not Resolved]
  - Genital herpes [Not Recovered/Not Resolved]

NARRATIVE: CASE EVENT DATE: 2016
